FAERS Safety Report 14765858 (Version 5)
Quarter: 2018Q2

REPORT INFORMATION
  Report Type: Spontaneous
  Country: ES (occurrence: ES)
  Receive Date: 20180416
  Receipt Date: 20180530
  Transmission Date: 20180711
  Serious: Yes (Hospitalization)
  Sender: FDA-Public Use
  Company Number: ES-ALLERGAN-1821233US

PATIENT
  Age: 55 Year
  Sex: Male

DRUGS (3)
  1. PANTOPRAZOLE [Suspect]
     Active Substance: PANTOPRAZOLE
     Indication: GASTRIC DISORDER
     Route: 065
  2. ESCITALOPRAM OXALATE - BP [Suspect]
     Active Substance: ESCITALOPRAM OXALATE
     Indication: ABNORMAL BEHAVIOUR
     Dosage: 15 MG, QD
     Route: 065
     Dates: start: 201402
  3. HALOPERIDOL. [Suspect]
     Active Substance: HALOPERIDOL
     Indication: ABNORMAL BEHAVIOUR
     Dosage: 2 MG, QD
     Route: 065
     Dates: start: 201402

REACTIONS (6)
  - Hypomagnesaemia [Recovered/Resolved]
  - Cardio-respiratory arrest [Unknown]
  - Condition aggravated [Recovered/Resolved]
  - Mental disorder [Recovered/Resolved]
  - Torsade de pointes [Unknown]
  - Off label use [Unknown]

NARRATIVE: CASE EVENT DATE: 201409
